FAERS Safety Report 5052492-5 (Version None)
Quarter: 2006Q3

REPORT INFORMATION
  Report Type: 
  Country: None (occurrence: None)
  Receive Date: 20060717
  Receipt Date: 20060317
  Transmission Date: 20061208
  Serious: Yes (Hospitalization)
  Sender: FDA-Public Use
  Company Number: US-AVENTIS-200612719US

PATIENT
  Sex: Male
  Weight: 97 kg

DRUGS (11)
  1. APIDRA [Suspect]
     Indication: DIABETES MELLITUS
     Dosage: DOSE UNIT: UNITS
     Dates: start: 20060313, end: 20060313
  2. HUMALOG [Concomitant]
     Dosage: DOSE: 5 UNITS QAC AND SLIDING SCALE
  3. HUMALOG [Concomitant]
     Dosage: DOSE: UNK
  4. LANTUS [Concomitant]
     Dosage: DOSE UNIT: UNITS
  5. LANTUS [Concomitant]
     Dosage: DOSE: UNKNOWN
  6. LOTENSIN [Concomitant]
  7. HYDROCHLOROTHIAZIDE [Concomitant]
  8. LIPITOR [Concomitant]
  9. LOVENOX [Concomitant]
     Dosage: DOSE: UNK
  10. CARDIZEM [Concomitant]
     Dosage: DOSE: UNK
  11. NOVOLOG [Concomitant]
     Dosage: DOSE: UNK

REACTIONS (6)
  - ATRIAL FIBRILLATION [None]
  - BLOOD GLUCOSE INCREASED [None]
  - DIABETES MELLITUS INADEQUATE CONTROL [None]
  - ELECTROENCEPHALOGRAM ABNORMAL [None]
  - EPILEPSY [None]
  - HYPERGLYCAEMIA [None]
